FAERS Safety Report 7244264-8 (Version None)
Quarter: 2011Q1

REPORT INFORMATION
  Report Type: 
  Country: None (occurrence: None)
  Receive Date: 20110125
  Receipt Date: 20110113
  Transmission Date: 20110831
  Serious: Yes (Death, Life-Threatening, Hospitalization)
  Sender: FDA-Public Use
  Company Number: US-GILEAD-2010-0034721

PATIENT
  Sex: Female
  Weight: 60.382 kg

DRUGS (2)
  1. AMBRISENTAN [Suspect]
     Route: 048
     Dates: start: 20100525, end: 20100608
  2. AMBRISENTAN [Suspect]
     Indication: IDIOPATHIC PULMONARY FIBROSIS
     Route: 048
     Dates: start: 20100609

REACTIONS (1)
  - IDIOPATHIC PULMONARY FIBROSIS [None]
